FAERS Safety Report 13781229 (Version 6)
Quarter: 2018Q2

REPORT INFORMATION
  Report Type: Spontaneous
  Country: US (occurrence: US)
  Receive Date: 20170724
  Receipt Date: 20180517
  Transmission Date: 20180711
  Serious: Yes (Other)
  Sender: FDA-Public Use
  Company Number: US-AMGEN-USASP2017108294

PATIENT
  Age: 66 Year
  Sex: Female

DRUGS (8)
  1. METHOTREXATE SODIUM. [Suspect]
     Active Substance: METHOTREXATE SODIUM
     Indication: RHEUMATOID ARTHRITIS
     Dosage: 25 MG, QWK
     Route: 058
  2. HUMIRA [Suspect]
     Active Substance: ADALIMUMAB
     Indication: RHEUMATOID ARTHRITIS
     Dosage: UNK
     Route: 065
  3. AMOXICILLIN. [Concomitant]
     Active Substance: AMOXICILLIN
     Dosage: 500 MG, UNK
  4. ENBREL [Suspect]
     Active Substance: ETANERCEPT
     Indication: RHEUMATOID ARTHRITIS
     Dosage: UNK
     Route: 065
  5. RITUXIMAB. [Suspect]
     Active Substance: RITUXIMAB
     Indication: RHEUMATOID ARTHRITIS
     Dosage: UNK
     Route: 058
  6. XELJANZ XR [Suspect]
     Active Substance: TOFACITINIB CITRATE
     Indication: RHEUMATOID ARTHRITIS
     Dosage: 11 MG, QD
     Route: 048
  7. CELEBREX [Concomitant]
     Active Substance: CELECOXIB
     Dosage: UNK
     Dates: start: 2005
  8. PREDNISONE. [Concomitant]
     Active Substance: PREDNISONE
     Dosage: UNK
     Dates: start: 1990

REACTIONS (13)
  - Myocardial infarction [Unknown]
  - Osteoarthritis [Unknown]
  - Eye disorder [Not Recovered/Not Resolved]
  - Drug effect incomplete [Unknown]
  - Limb discomfort [Unknown]
  - Musculoskeletal disorder [Unknown]
  - Musculoskeletal stiffness [Unknown]
  - Spinal column stenosis [Unknown]
  - Muscle strain [Unknown]
  - Tendonitis [Unknown]
  - Fall [Unknown]
  - Peripheral swelling [Unknown]
  - Arthralgia [Not Recovered/Not Resolved]

NARRATIVE: CASE EVENT DATE: 2018
